FAERS Safety Report 23637234 (Version 1)
Quarter: 2024Q1

REPORT INFORMATION
  Report Type: Spontaneous
  Country: SA (occurrence: SA)
  Receive Date: 20240315
  Receipt Date: 20240315
  Transmission Date: 20240409
  Serious: Yes (Other)
  Sender: FDA-Public Use
  Company Number: SA-002147023-NVSC2024SA040541

PATIENT
  Age: 62 Year
  Sex: Female

DRUGS (2)
  1. RIBOCICLIB [Suspect]
     Active Substance: RIBOCICLIB
     Indication: Breast cancer metastatic
     Dosage: 600 MG, QD
     Route: 048
  2. RIBOCICLIB [Suspect]
     Active Substance: RIBOCICLIB
     Dosage: 400 MG, QD (DOSE WAS REDUCED AFTER 1 MONTH DUE TO MYELOTOXICITY)
     Route: 048

REACTIONS (2)
  - Myelosuppression [Recovered/Resolved]
  - Gastrointestinal disorder [Recovered/Resolved]
